FAERS Safety Report 7307821-6 (Version None)
Quarter: 2011Q1

REPORT INFORMATION
  Report Type: 
  Country: None (occurrence: None)
  Receive Date: 20110209
  Receipt Date: 20110124
  Transmission Date: 20110831
  Serious: Yes (Death)
  Sender: FDA-Public Use
  Company Number: 2011S1000050

PATIENT
  Age: 38 Year
  Sex: Female

DRUGS (6)
  1. HYDROMORPHONE [Suspect]
     Dates: end: 20090101
  2. BENZODIAZEPINE [Suspect]
     Dates: end: 20090101
  3. OPIOID [Suspect]
     Dates: end: 20090101
  4. VERAPAMIL [Suspect]
     Dates: end: 20090101
  5. TOPIRAMATE [Suspect]
     Dates: end: 20090101
  6. ROXICODONE [Suspect]
     Dosage: PO
     Route: 048
     Dates: end: 20090101

REACTIONS (2)
  - COMPLETED SUICIDE [None]
  - ASPIRATION [None]
